FAERS Safety Report 5089739-5 (Version None)
Quarter: 2006Q3

REPORT INFORMATION
  Report Type: 
  Country: None (occurrence: None)
  Receive Date: 20060828
  Receipt Date: 20060705
  Transmission Date: 20061208
  Serious: Yes (Disabling, Other)
  Sender: FDA-Public Use
  Company Number: US-BRISTOL-MYERS SQUIBB COMPANY-13433875

PATIENT
  Sex: Male

DRUGS (2)
  1. KENALOG-40 [Suspect]
     Indication: MACULAR OEDEMA
     Route: 031
     Dates: start: 20060621
  2. KENALOG-40 [Suspect]
     Indication: MACULAR DEGENERATION
     Route: 031
     Dates: start: 20060621

REACTIONS (1)
  - ENDOPHTHALMITIS [None]
